FAERS Safety Report 9049845 (Version 2)
Quarter: 2013Q1

REPORT INFORMATION
  Report Type: Spontaneous
  Country: FR (occurrence: FR)
  Receive Date: 20130205
  Receipt Date: 20130315
  Transmission Date: 20140127
  Serious: Yes (Hospitalization)
  Sender: FDA-Public Use
  Company Number: FR-ABBOTT-13P-056-1041801-00

PATIENT
  Age: 32 None
  Sex: Male
  Weight: 96 kg

DRUGS (1)
  1. HUMIRA [Suspect]
     Indication: ANKYLOSING SPONDYLITIS
     Dates: start: 20110221, end: 20121115

REACTIONS (19)
  - Gait disturbance [Unknown]
  - Abasia [Unknown]
  - Vertigo [Unknown]
  - Viral infection [Recovered/Resolved]
  - Rash [Recovered/Resolved]
  - Skin plaque [Recovered/Resolved]
  - Rash pruritic [Recovered/Resolved]
  - Acne [Unknown]
  - Headache [Unknown]
  - Aphasia [Unknown]
  - Rash [Unknown]
  - Blood lactate dehydrogenase increased [Unknown]
  - Nasopharyngitis [Unknown]
  - Fatigue [Unknown]
  - Myalgia [Unknown]
  - Lasegue^s test positive [Unknown]
  - Encephalitic infection [Unknown]
  - Fatigue [Unknown]
  - Gamma-glutamyltransferase increased [Unknown]
